FAERS Safety Report 4503355-2 (Version None)
Quarter: 2004Q4

REPORT INFORMATION
  Report Type: 
  Country: None (occurrence: None)
  Receive Date: 20041112
  Receipt Date: 20041029
  Transmission Date: 20050328
  Serious: Yes (Other)
  Sender: FDA-Public Use
  Company Number: 2004242460GB

PATIENT
  Age: 66 Year
  Sex: Female

DRUGS (3)
  1. XALATAN [Suspect]
     Indication: GLAUCOMA
     Dosage: 1 GTT, BID, OPHTHALMIC
     Route: 047
     Dates: start: 20000101, end: 20040703
  2. TIMOLOL MALEATE [Concomitant]
  3. COSOPT [Concomitant]

REACTIONS (4)
  - DYSPNOEA [None]
  - HEART RATE INCREASED [None]
  - PALPITATIONS [None]
  - THROAT IRRITATION [None]
